FAERS Safety Report 7623374-7 (Version None)
Quarter: 2011Q3

REPORT INFORMATION
  Report Type: 
  Country: None (occurrence: None)
  Receive Date: 20110720
  Receipt Date: 20110708
  Transmission Date: 20111222
  Serious: Yes (Other)
  Sender: FDA-Public Use
  Company Number: GB-ROCHE-789410

PATIENT
  Age: 61 Year
  Sex: Female

DRUGS (4)
  1. MYCOPHENOLATE MOFETIL [Suspect]
     Indication: RENAL TRANSPLANT
     Dosage: FREQUENCY:01 DAY
     Route: 065
     Dates: start: 20050201
  2. PREDNISOLONE [Suspect]
     Indication: RENAL TRANSPLANT
     Route: 065
  3. TACROLIMUS [Suspect]
     Indication: RENAL TRANSPLANT
     Route: 065
  4. CYCLOSPORINE [Suspect]
     Indication: RENAL TRANSPLANT
     Route: 065

REACTIONS (2)
  - HYPOGAMMAGLOBULINAEMIA [None]
  - BRONCHIECTASIS [None]
